FAERS Safety Report 16101672 (Version 1)
Quarter: 2019Q1

REPORT INFORMATION
  Report Type: Spontaneous
  Country: PT (occurrence: PT)
  Receive Date: 20190321
  Receipt Date: 20190321
  Transmission Date: 20190418
  Serious: Yes (Hospitalization)
  Sender: FDA-Public Use
  Company Number: PT-009507513-1903PRT007972

PATIENT
  Age: 52 Year

DRUGS (2)
  1. BETASERC [Concomitant]
     Active Substance: BETAHISTINE
     Indication: MENIERE^S DISEASE
     Route: 048
  2. INVANZ [Suspect]
     Active Substance: ERTAPENEM SODIUM
     Indication: PROPHYLAXIS
     Dosage: 1000 MILLIGRAM, ONCE
     Route: 042
     Dates: start: 20070413, end: 20070413

REACTIONS (3)
  - Pruritus [Recovered/Resolved]
  - Rash maculo-papular [Recovered/Resolved]
  - Toxic skin eruption [Recovered/Resolved]

NARRATIVE: CASE EVENT DATE: 20070417
